FAERS Safety Report 11565999 (Version 1)
Quarter: 2015Q3

REPORT INFORMATION
  Report Type: Spontaneous
  Country: US (occurrence: US)
  Receive Date: 20150916
  Receipt Date: 20150916
  Transmission Date: 20151125
  Serious: No
  Sender: FDA-Public Use
  Company Number: US-ELI_LILLY_AND_COMPANY-US200905003856

PATIENT
  Age: 77 Year
  Sex: Female

DRUGS (6)
  1. ALENDRONATE SODIUM. [Concomitant]
     Active Substance: ALENDRONATE SODIUM
     Dosage: 70 MG, UNK
  2. GARLIC. [Concomitant]
     Active Substance: GARLIC
  3. PLAVIX [Concomitant]
     Active Substance: CLOPIDOGREL BISULFATE
  4. NIACIN. [Concomitant]
     Active Substance: NIACIN
  5. FORTEO [Suspect]
     Active Substance: TERIPARATIDE
     Dates: start: 2007, end: 200905
  6. FISH OIL [Concomitant]
     Active Substance: FISH OIL

REACTIONS (9)
  - Injection site pain [Recovered/Resolved]
  - Bone pain [Recovered/Resolved]
  - Abdominal discomfort [Recovered/Resolved]
  - Nausea [Recovered/Resolved]
  - Blood pressure abnormal [Recovered/Resolved]
  - Memory impairment [Not Recovered/Not Resolved]
  - Terminal insomnia [Recovered/Resolved]
  - Feeling abnormal [Recovered/Resolved]
  - Adverse drug reaction [Recovered/Resolved]

NARRATIVE: CASE EVENT DATE: 2007
